FAERS Safety Report 4335324-X (Version None)
Quarter: 2004Q2

REPORT INFORMATION
  Report Type: 
  Country: None (occurrence: None)
  Receive Date: 20040407
  Receipt Date: 20040407
  Transmission Date: 20050107
  Serious: Yes (Life-Threatening, Hospitalization, Disabling)
  Sender: FDA-Public Use
  Company Number: None

PATIENT
  Age: 46 Year
  Sex: Female
  Weight: 89.8122 kg

DRUGS (3)
  1. CELEBREX [Suspect]
     Indication: ARTHRALGIA
     Dosage: 1 CAP TWICE DAILY
     Dates: start: 20020117, end: 20020301
  2. CELEBREX [Suspect]
  3. BEXTRA [Suspect]
     Dosage: 1 CAPS 3 TIMES DAILY
     Dates: start: 20020503, end: 20020527

REACTIONS (25)
  - ANXIETY [None]
  - ARTHROPATHY [None]
  - CARPAL TUNNEL SYNDROME [None]
  - CHEST PAIN [None]
  - CHOKING [None]
  - CUTANEOUS LUPUS ERYTHEMATOSUS [None]
  - DEPRESSION [None]
  - DIFFICULTY IN WALKING [None]
  - DISCOMFORT [None]
  - DYSPNOEA [None]
  - FEELING ABNORMAL [None]
  - GENERAL PHYSICAL HEALTH DETERIORATION [None]
  - HEADACHE [None]
  - IMMUNE SYSTEM DISORDER [None]
  - INFECTION [None]
  - JOINT SWELLING [None]
  - LOSS OF CONSCIOUSNESS [None]
  - MUSCLE TIGHTNESS [None]
  - ORAL INFECTION [None]
  - PAIN [None]
  - PAIN EXACERBATED [None]
  - PHARYNGOLARYNGEAL PAIN [None]
  - STEVENS-JOHNSON SYNDROME [None]
  - SWELLING [None]
  - WHEEZING [None]
